FAERS Safety Report 18942501 (Version 1)
Quarter: 2021Q1

REPORT INFORMATION
  Report Type: Spontaneous
  Country: US (occurrence: US)
  Receive Date: 20210225
  Receipt Date: 20210225
  Transmission Date: 20210420
  Serious: Yes (Death, Hospitalization)
  Sender: FDA-Public Use
  Company Number: US-ELI_LILLY_AND_COMPANY-US202102010885

PATIENT
  Sex: Male
  Weight: 53 kg

DRUGS (1)
  1. BAMLANIVIMAB 700MG [Suspect]
     Active Substance: BAMLANIVIMAB
     Indication: COVID-19
     Dosage: 700 MG, SINGLE
     Route: 042
     Dates: start: 20210202, end: 20210202

REACTIONS (5)
  - Fall [Unknown]
  - Mental impairment [Unknown]
  - Death [Fatal]
  - Pneumonia [Unknown]
  - Urinary tract infection [Unknown]
